FAERS Safety Report 6371062-X (Version None)
Quarter: 2009Q3

REPORT INFORMATION
  Report Type: 
  Country: None (occurrence: None)
  Receive Date: 20090921
  Receipt Date: 20090921
  Transmission Date: 20100115
  Serious: Yes (Death)
  Sender: FDA-Public Use
  Company Number: None

PATIENT
  Sex: Female
  Weight: 55.7 kg

DRUGS (7)
  1. RITUXIMAB [Suspect]
     Indication: B-CELL SMALL LYMPHOCYTIC LYMPHOMA
     Dosage: 375 MG/M2, 5 TIMES
     Dates: start: 20090125, end: 20090326
  2. RITUXIMAB [Suspect]
     Indication: CHRONIC LYMPHOCYTIC LEUKAEMIA
     Dosage: 375 MG/M2, 5 TIMES
     Dates: start: 20090125, end: 20090326
  3. CYCLOPHOSPHAMIDE [Concomitant]
  4. FLUDARABINE [Concomitant]
  5. METHOTREXATE [Concomitant]
  6. NEUPOGEN [Concomitant]
  7. SIROLIMUS [Concomitant]

REACTIONS (14)
  - ASTHENIA [None]
  - COLITIS [None]
  - DIARRHOEA [None]
  - FAECAL INCONTINENCE [None]
  - FATIGUE [None]
  - GRAFT VERSUS HOST DISEASE [None]
  - INFLAMMATION [None]
  - LIVER FUNCTION TEST ABNORMAL [None]
  - MENTAL STATUS CHANGES [None]
  - ODYNOPHAGIA [None]
  - OESOPHAGEAL ULCER [None]
  - PLEURAL EFFUSION [None]
  - RESPIRATORY DISORDER [None]
  - WEIGHT DECREASED [None]
